FAERS Safety Report 8776005 (Version 2)
Quarter: 2012Q4

REPORT INFORMATION
  Report Type: 
  Country: US (occurrence: US)
  Receive Date: 20120910
  Receipt Date: 20120924
  Transmission Date: 20130627
  Serious: Yes (Other)
  Sender: FDA-Public Use
  Company Number: US-BRISTOL-MYERS SQUIBB COMPANY-16917536

PATIENT
  Age: 46 Year
  Sex: Female

DRUGS (1)
  1. ABATACEPT SUBQ INJECTION 125MG/ML [Suspect]
     Indication: RHEUMATOID ARTHRITIS
     Dosage: Last inj on 12Aug12
Later switched to 125mg/week in Mar2012-ong
     Route: 058
     Dates: start: 20120331

REACTIONS (2)
  - Osteoarthritis [Unknown]
  - Rheumatoid arthritis [Unknown]
